FAERS Safety Report 15036107 (Version 4)
Quarter: 2020Q2

REPORT INFORMATION
  Report Type: Spontaneous
  Country: FR (occurrence: FR)
  Receive Date: 20180620
  Receipt Date: 20200501
  Transmission Date: 20200713
  Serious: Yes (Life-Threatening, Hospitalization)
  Sender: FDA-Public Use
  Company Number: FR-CELGENEUS-FRA-20180603236

PATIENT
  Age: 69 Year
  Sex: Male

DRUGS (17)
  1. TOPLEXIL [Concomitant]
     Indication: COUGH
     Dosage: 3 TEASPOON
     Route: 048
     Dates: start: 20180215
  2. MOVICOL [Concomitant]
     Active Substance: POLYETHYLENE GLYCOL 3350\POTASSIUM CHLORIDE\SODIUM BICARBONATE\SODIUM CHLORIDE
     Indication: CONSTIPATION
     Dosage: 2 BAG
     Route: 048
     Dates: start: 20171219
  3. TITANOREINE [Concomitant]
     Active Substance: CARRAGEENAN\TITANIUM\ZINC
     Dosage: 80 G
     Route: 061
     Dates: start: 20171223
  4. RASBURICASE [Concomitant]
     Active Substance: RASBURICASE
     Indication: PRODUCT USED FOR UNKNOWN INDICATION
     Route: 065
     Dates: start: 20171120, end: 20171121
  5. VENETOCLAX. [Concomitant]
     Active Substance: VENETOCLAX
     Indication: ACUTE MYELOID LEUKAEMIA
     Dosage: 100 MILLIGRAM
     Route: 048
     Dates: start: 20171120, end: 20171123
  6. VENETOCLAX. [Concomitant]
     Active Substance: VENETOCLAX
     Dosage: 50 MILLIGRAM
     Route: 048
     Dates: start: 20171124, end: 20180211
  7. AZACITIDINE INJECTABLE [Suspect]
     Active Substance: AZACITIDINE
     Indication: ACUTE MYELOID LEUKAEMIA
     Dosage: 75 MG/M2
     Route: 058
     Dates: start: 20171120, end: 20180513
  8. TITANOREINE [Concomitant]
     Active Substance: CARRAGEENAN\TITANIUM\ZINC
     Indication: ANAL FISSURE
     Dosage: 80 G
     Route: 054
     Dates: start: 20171223
  9. VERATRAN [Concomitant]
     Active Substance: CLOTIAZEPAM
     Indication: PROPHYLAXIS
     Route: 048
     Dates: start: 201803
  10. VERATRAN [Concomitant]
     Active Substance: CLOTIAZEPAM
     Indication: ANXIETY
     Dosage: 5 MG
     Route: 048
     Dates: start: 20171206
  11. CORTANCYL [Concomitant]
     Active Substance: PREDNISONE
     Indication: PNEUMONIA
     Dosage: 60 MILLIGRAM
     Route: 048
     Dates: start: 20180326, end: 201805
  12. VENETOCLAX. [Concomitant]
     Active Substance: VENETOCLAX
     Dosage: 200 MILLIGRAM
     Route: 048
     Dates: start: 20180213, end: 20180213
  13. VENETOCLAX. [Concomitant]
     Active Substance: VENETOCLAX
     Dosage: 400 MILLIGRAM
     Route: 048
     Dates: start: 20180330, end: 20180603
  14. CORTANCYL [Concomitant]
     Active Substance: PREDNISONE
     Dosage: 15 MG
     Route: 048
     Dates: start: 201805
  15. ZOPHREN [Concomitant]
     Active Substance: ONDANSETRON
     Indication: PROPHYLAXIS OF NAUSEA AND VOMITING
     Dosage: 4 MG
     Route: 048
     Dates: start: 20171219
  16. VENETOCLAX. [Concomitant]
     Active Substance: VENETOCLAX
     Dosage: 100 MILLIGRAM
     Route: 048
     Dates: start: 20180212, end: 20180212
  17. VENETOCLAX. [Concomitant]
     Active Substance: VENETOCLAX
     Dosage: 400 MILLIGRAM
     Route: 048
     Dates: start: 20180214, end: 20180324

REACTIONS (1)
  - Subdural haematoma [Not Recovered/Not Resolved]

NARRATIVE: CASE EVENT DATE: 20180604
